FAERS Safety Report 8906201 (Version 1)
Quarter: 2012Q4

REPORT INFORMATION
  Report Type: Spontaneous
  Country: US (occurrence: None)
  Receive Date: 20121112
  Receipt Date: 20121112
  Transmission Date: 20130627
  Serious: Yes (Other)
  Sender: FDA-Public Use
  Company Number: None

PATIENT
  Age: 42 Year
  Sex: Female
  Weight: 49.9 kg

DRUGS (4)
  1. HYDROMORPHONE [Suspect]
     Indication: PAIN RELIEF
     Dosage: 1/2 or whole Tablet 2x day as needed po
     Route: 048
     Dates: start: 20121110, end: 20121111
  2. HYDROMORPHONE [Suspect]
     Indication: ADENOMYOSIS
     Dosage: 1/2 or whole Tablet 2x day as needed po
     Route: 048
     Dates: start: 20121110, end: 20121111
  3. HYDROMORPHONE [Suspect]
     Indication: ENDOMETRIOSIS
     Dosage: 1/2 or whole Tablet 2x day as needed po
     Route: 048
     Dates: start: 20121110, end: 20121111
  4. HYDROMORPHONE [Suspect]
     Indication: MIGRAINE
     Dosage: 1/2 or whole Tablet 2x day as needed po
     Route: 048
     Dates: start: 20121110, end: 20121111

REACTIONS (3)
  - Product counterfeit [None]
  - Nausea [None]
  - No therapeutic response [None]
